FAERS Safety Report 6339137-9 (Version None)
Quarter: 2009Q3

REPORT INFORMATION
  Report Type: 
  Country: None (occurrence: None)
  Receive Date: 20090831
  Receipt Date: 20090615
  Transmission Date: 20100115
  Serious: No
  Sender: FDA-Public Use
  Company Number: MC200900220

PATIENT

DRUGS (1)
  1. CLEVIPREX [Suspect]
     Dosage: 32 MG, HR, INTRAVENOUS
     Route: 042

REACTIONS (1)
  - NO THERAPEUTIC RESPONSE [None]
